FAERS Safety Report 18104675 (Version 3)
Quarter: 2024Q3

REPORT INFORMATION
  Report Type: Spontaneous
  Country: JP (occurrence: JP)
  Receive Date: 20200803
  Receipt Date: 20240718
  Transmission Date: 20241016
  Serious: Yes (Other)
  Sender: AMGEN
  Company Number: JP-DSJP-DSJ-2020-121813

PATIENT
  Age: 30 Year
  Sex: Female

DRUGS (9)
  1. DENOSUMAB [Suspect]
     Active Substance: DENOSUMAB
     Indication: Bone giant cell tumour
     Dosage: 120 MG/DAY(DAY 1)
     Route: 065
  2. DENOSUMAB [Suspect]
     Active Substance: DENOSUMAB
     Dosage: 120 MG/DAY(DAY 8)
     Route: 065
  3. DENOSUMAB [Suspect]
     Active Substance: DENOSUMAB
     Dosage: 120 MG/DAY(DAY 15)
     Route: 065
  4. DENOSUMAB [Suspect]
     Active Substance: DENOSUMAB
     Dosage: 120 MG/DAY(DAY 29)
     Route: 065
  5. DENOSUMAB [Suspect]
     Active Substance: DENOSUMAB
     Dosage: 120 MG, ONCE EVERY 4 WK (20 DOSES)
     Route: 065
  6. DENOSUMAB [Suspect]
     Active Substance: DENOSUMAB
     Dosage: 120 MG, ONCE EVERY 8 WK  (4 DOSES)
     Route: 065
  7. DENOSUMAB [Suspect]
     Active Substance: DENOSUMAB
     Dosage: 120 MG, ONCE EVERY 12 WK  (1 DOSES)
     Route: 065
  8. CALCIUM [Concomitant]
     Active Substance: CALCIUM
     Indication: Product used for unknown indication
     Dosage: UNK UNK, QD (DOSE UNKNOWN,EVERY DAY)
     Route: 065
  9. VITAMIN D [Concomitant]
     Active Substance: VITAMIN D NOS
     Indication: Product used for unknown indication
     Dosage: UNK, QD (DOSE UNKNOWN,EVERY DAY)
     Route: 065

REACTIONS (1)
  - Malignant transformation [Recovering/Resolving]
